FAERS Safety Report 24618268 (Version 2)
Quarter: 2025Q4

REPORT INFORMATION
  Report Type: Spontaneous
  Country: US (occurrence: US)
  Receive Date: 20241114
  Receipt Date: 20251127
  Transmission Date: 20260117
  Serious: No
  Sender: CSL BEHRING
  Company Number: US-BEH-2024185198

PATIENT
  Age: 34 Year
  Sex: Female

DRUGS (1)
  1. PRIVIGEN [Suspect]
     Active Substance: HUMAN IMMUNOGLOBULIN G
     Indication: Hypogammaglobulinaemia
     Dosage: 0.4 G/KG, TOTAL DOSE 25 G
     Route: 042

REACTIONS (5)
  - Symmetrical drug-related intertriginous and flexural exanthema [Recovered/Resolved]
  - Rash erythematous [Unknown]
  - Pruritus [Unknown]
  - C-reactive protein increased [Unknown]
  - Headache [Recovered/Resolved]
